FAERS Safety Report 5526677-5 (Version None)
Quarter: 2007Q4

REPORT INFORMATION
  Report Type: 
  Country: None (occurrence: None)
  Receive Date: 20071120
  Receipt Date: 20061101
  Transmission Date: 20080405
  Serious: Yes (Disabling)
  Sender: FDA-Public Use
  Company Number: 2006074395

PATIENT
  Sex: Female

DRUGS (4)
  1. TIKOSYN [Suspect]
     Indication: ATRIAL FIBRILLATION
     Dosage: 0.75 MG (INTERVAL: EVERY DAY)
     Dates: start: 20060301
  2. EPINEPHRINE [Suspect]
     Indication: DENTAL OPERATION
     Dates: start: 20061031, end: 20061031
  3. NITROUS OXIDE W/ OXYGEN [Suspect]
     Indication: DENTAL OPERATION
     Dates: start: 20061031, end: 20061031
  4. AMPICILLIN [Suspect]
     Dosage: 1000 MG
     Dates: start: 20061031

REACTIONS (5)
  - ATRIAL FIBRILLATION [None]
  - BACK PAIN [None]
  - DISEASE RECURRENCE [None]
  - DRUG INTERACTION [None]
  - SMEAR CERVIX ABNORMAL [None]
